FAERS Safety Report 15014556 (Version 2)
Quarter: 2018Q2

REPORT INFORMATION
  Report Type: Spontaneous
  Country: NL (occurrence: NL)
  Receive Date: 20180615
  Receipt Date: 20180627
  Transmission Date: 20180711
  Serious: Yes (Other)
  Sender: FDA-Public Use
  Company Number: NL-TEVA-2018-NL-906764

PATIENT
  Age: 58 Year
  Sex: Male
  Weight: 99 kg

DRUGS (5)
  1. OMEPRAZOL 20MG [Concomitant]
     Dosage: 20 MILLIGRAM DAILY; 1DD1
     Route: 065
  2. SALBUTAMOL 100MZG NOVOLIZER [Concomitant]
     Dosage: ZN (5-10TIMES A WEEK)
     Route: 065
  3. SPIRIVA RESPIMAT 2.5 MCG [Concomitant]
     Dosage: 5 MICROGRAM DAILY; 1DD2
     Route: 065
  4. AZITROMYCINE TABLET 250MG TABLET, 250 MG (MILLIGRAM) [Suspect]
     Active Substance: AZITHROMYCIN
     Indication: RESPIRATORY TRACT INFECTION
     Dosage: MONDAY, WEDNESDAY, FRIDAY
     Route: 065
     Dates: start: 20180105, end: 20180323
  5. FLUTIFORM DA 250/10 MCG [Concomitant]
     Dosage: 2DD2
     Route: 065

REACTIONS (2)
  - Depression [Recovering/Resolving]
  - Suicidal ideation [Recovering/Resolving]

NARRATIVE: CASE EVENT DATE: 201802
